FAERS Safety Report 11088974 (Version 1)
Quarter: 2015Q2

REPORT INFORMATION
  Report Type: Report from Study
  Country: US (occurrence: US)
  Receive Date: 20150504
  Receipt Date: 20150504
  Transmission Date: 20150821
  Serious: Yes (Other)
  Sender: FDA-Public Use
  Company Number: PHEH2015US006261

PATIENT
  Sex: Male
  Weight: 82.5 kg

DRUGS (2)
  1. EXJADE [Suspect]
     Active Substance: DEFERASIROX
     Indication: IRON OVERLOAD
     Dosage: 1500 MG, QD
     Route: 048
  2. HIDROXIUREA [Concomitant]
     Active Substance: HYDROXYUREA
     Indication: PRODUCT USED FOR UNKNOWN INDICATION
     Route: 065

REACTIONS (24)
  - White blood cell count increased [Unknown]
  - Neutrophil count increased [Unknown]
  - Haematocrit decreased [Unknown]
  - Nausea [Unknown]
  - Leukocytosis [Unknown]
  - Blood glucose decreased [Unknown]
  - Blood urea increased [Unknown]
  - Hyperlipidaemia [Unknown]
  - Haemoglobin decreased [Unknown]
  - Osteoporosis [Unknown]
  - Blood lactate dehydrogenase decreased [Unknown]
  - Lymphocyte count increased [Unknown]
  - Eosinophil count increased [Unknown]
  - Prostate cancer [Unknown]
  - Red cell distribution width increased [Unknown]
  - Diarrhoea [Unknown]
  - Diabetic neuropathy [Unknown]
  - Red blood cell nucleated morphology present [Unknown]
  - Glomerular filtration rate decreased [Unknown]
  - Red blood cell count decreased [Unknown]
  - Type 2 diabetes mellitus [Unknown]
  - Granulocyte count increased [Unknown]
  - Cytopenia [Unknown]
  - Blast cell count increased [Unknown]
